FAERS Safety Report 6218505-X (Version None)
Quarter: 2009Q2

REPORT INFORMATION
  Report Type: 
  Country: None (occurrence: None)
  Receive Date: 20090608
  Receipt Date: 20090526
  Transmission Date: 20091009
  Serious: Yes (Other)
  Sender: FDA-Public Use
  Company Number: IT-AMGEN-UK348636

PATIENT
  Sex: Male
  Weight: 100 kg

DRUGS (1)
  1. VECTIBIX [Suspect]
     Indication: COLORECTAL CANCER
     Route: 042
     Dates: start: 20080813, end: 20081029

REACTIONS (3)
  - FOLLICULITIS [None]
  - RASH [None]
  - SKIN TOXICITY [None]
